FAERS Safety Report 14493018 (Version 1)
Quarter: 2018Q1

REPORT INFORMATION
  Report Type: Spontaneous
  Country: US (occurrence: US)
  Receive Date: 20180206
  Receipt Date: 20180206
  Transmission Date: 20180509
  Serious: No
  Sender: FDA-Public Use
  Company Number: US-JNJFOC-20180132992

PATIENT
  Age: 19 Year
  Sex: Male
  Weight: 65.77 kg

DRUGS (1)
  1. INVEGA SUSTENNA [Suspect]
     Active Substance: PALIPERIDONE PALMITATE
     Indication: SCHIZOPHRENIA
     Route: 030
     Dates: start: 20180101

REACTIONS (5)
  - Dehydration [Recovered/Resolved]
  - Somnolence [Not Recovered/Not Resolved]
  - Contusion [Not Recovered/Not Resolved]
  - Syncope [Recovered/Resolved]
  - Hypertension [Recovered/Resolved]

NARRATIVE: CASE EVENT DATE: 20180101
